FAERS Safety Report 20835883 (Version 1)
Quarter: 2022Q2

REPORT INFORMATION
  Report Type: Report from Study
  Country: US (occurrence: US)
  Receive Date: 20220516
  Receipt Date: 20220516
  Transmission Date: 20220721
  Serious: Yes (Other)
  Sender: FDA-Public Use
  Company Number: US-SEAGEN-2022SGN04459

PATIENT
  Sex: Female

DRUGS (1)
  1. TISOTUMAB VEDOTIN [Suspect]
     Active Substance: TISOTUMAB VEDOTIN
     Indication: Cervix carcinoma
     Route: 065

REACTIONS (3)
  - Neuropathy peripheral [Unknown]
  - Eye irritation [Unknown]
  - Dry eye [Unknown]
